FAERS Safety Report 8451148 (Version 6)
Quarter: 2013Q2

REPORT INFORMATION
  Report Type: Spontaneous
  Country: JP (occurrence: JP)
  Receive Date: 20120309
  Receipt Date: 20130502
  Transmission Date: 20140414
  Serious: Yes (Life-Threatening, Hospitalization, Other)
  Sender: FDA-Public Use
  Company Number: JP-JNJFOC-20120302117

PATIENT
  Age: 87 Year
  Sex: Male
  Weight: 55 kg

DRUGS (29)
  1. TRAMCET [Suspect]
     Indication: POST HERPETIC NEURALGIA
     Dosage: 1 PER 1 DAY
     Route: 048
     Dates: start: 20120120, end: 20120302
  2. TRAMCET [Suspect]
     Indication: POST HERPETIC NEURALGIA
     Dosage: 1 PER 1 DAY
     Route: 048
     Dates: start: 20120525, end: 20120622
  3. TRAMCET [Suspect]
     Indication: POST HERPETIC NEURALGIA
     Dosage: 1 PER DAY
     Route: 048
  4. TRAMCET [Suspect]
     Indication: PAIN
     Dosage: 1 PER 1 DAY
     Route: 048
     Dates: start: 20120120, end: 20120302
  5. TRAMCET [Suspect]
     Indication: PAIN
     Dosage: 1 PER 1 DAY
     Route: 048
     Dates: start: 20120525, end: 20120622
  6. TRAMCET [Suspect]
     Indication: PAIN
     Dosage: 1 PER DAY
     Route: 048
  7. LYRICA [Suspect]
     Indication: PAIN
     Dosage: 1 PER 1 DAY
     Route: 048
     Dates: start: 20110701, end: 20110909
  8. LYRICA [Suspect]
     Indication: PAIN
     Dosage: 1 PER 1 DAY
     Route: 048
     Dates: start: 20110910, end: 20111020
  9. LYRICA [Suspect]
     Indication: PAIN
     Dosage: 1 PER 1 DAY
     Route: 048
     Dates: start: 20111021, end: 20111116
  10. LYRICA [Suspect]
     Indication: PAIN
     Route: 048
     Dates: start: 20120622, end: 20120705
  11. LYRICA [Suspect]
     Indication: PAIN
     Dosage: 1 PER 1 DAY
     Route: 048
     Dates: start: 20120706, end: 20120720
  12. LYRICA [Suspect]
     Indication: PAIN
     Dosage: 1 PER 1 DAY
     Route: 048
     Dates: start: 20120721, end: 20120816
  13. LYRICA [Suspect]
     Indication: PAIN
     Dosage: 1 PER 1 DAY
     Route: 048
     Dates: start: 20120817
  14. LYRICA [Suspect]
     Indication: PAIN
     Dosage: ONCE A DAY
     Route: 048
  15. LYRICA [Suspect]
     Indication: PAIN
     Dosage: 1 PER 1 DAY
     Route: 048
     Dates: start: 20111117, end: 20120302
  16. LYRICA [Suspect]
     Indication: PAIN
     Dosage: 1 PER 1 DAY
     Route: 048
     Dates: start: 201106, end: 20110630
  17. EPLERENONE [Concomitant]
     Indication: HYPERTENSION
     Dosage: ONCE A DAY
     Route: 048
     Dates: start: 20110422, end: 20120317
  18. PLAVIX [Concomitant]
     Indication: CEREBRAL INFARCTION
     Dosage: 1 PER 1 DAY
     Route: 048
     Dates: start: 20100831, end: 20120317
  19. BLOPRESS [Concomitant]
     Indication: HYPERTENSION
     Dosage: ONCE A DAY
     Route: 048
     Dates: start: 201301
  20. BLOPRESS [Concomitant]
     Indication: HYPERTENSION
     Dosage: ONCE A DAY
     Route: 048
     Dates: start: 20090717, end: 201301
  21. ARICEPT [Concomitant]
     Indication: DEMENTIA
     Dosage: ONCE A DAY
     Route: 048
     Dates: start: 201009
  22. JZOLOFT [Concomitant]
     Indication: DEPRESSION
     Dosage: ONCE A DAY
     Route: 048
     Dates: start: 20101008, end: 20120317
  23. ATELEC [Concomitant]
     Indication: HYPERTENSION
     Dosage: ONCE A DAY
     Route: 048
     Dates: start: 201301
  24. ATELEC [Concomitant]
     Indication: HYPERTENSION
     Dosage: ONCE A DAY
     Route: 048
     Dates: start: 20110218, end: 201301
  25. OPALMON [Concomitant]
     Indication: LUMBAR SPINAL STENOSIS
     Dosage: ONCE A DAY
     Route: 048
     Dates: start: 20110826, end: 20120317
  26. FAMOTIDINE [Concomitant]
     Indication: GASTRITIS
     Dosage: 1 PER 1 DAY
     Route: 048
     Dates: start: 20100615, end: 201301
  27. BENFOTIAMINE [Concomitant]
     Indication: HERPES ZOSTER
     Route: 048
     Dates: start: 20080610
  28. HARNAL [Concomitant]
     Indication: BENIGN PROSTATIC HYPERPLASIA
     Dosage: 1 PER 1 DAY
     Route: 048
     Dates: start: 20100907
  29. MAGMITT [Concomitant]
     Indication: CONSTIPATION
     Route: 048
     Dates: start: 20100831

REACTIONS (5)
  - Bradycardia [Recovered/Resolved]
  - Atrioventricular block complete [Recovering/Resolving]
  - Nausea [Recovered/Resolved]
  - Vomiting [Recovered/Resolved]
  - Decreased appetite [Recovered/Resolved]
